FAERS Safety Report 24711630 (Version 1)
Quarter: 2024Q4

REPORT INFORMATION
  Report Type: Spontaneous
  Country: US (occurrence: None)
  Receive Date: 20241207
  Receipt Date: 20241207
  Transmission Date: 20250115
  Serious: No
  Sender: Public
  Company Number: None

PATIENT
  Age: 77 Year
  Sex: Female

DRUGS (1)
  1. PIRFENIDONE [Suspect]
     Active Substance: PIRFENIDONE
     Indication: Interstitial lung disease
     Dosage: 267MG TID ORAL?
     Route: 048
     Dates: start: 20241029, end: 20241205

REACTIONS (5)
  - Retching [None]
  - Nausea [None]
  - Syncope [None]
  - Hyperhidrosis [None]
  - Therapy cessation [None]

NARRATIVE: CASE EVENT DATE: 20241205
